FAERS Safety Report 8332732-7 (Version None)
Quarter: 2012Q2

REPORT INFORMATION
  Report Type: 
  Country: None (occurrence: None)
  Receive Date: 20120503
  Receipt Date: 20120423
  Transmission Date: 20120825
  Serious: Yes (Hospitalization, Other)
  Sender: FDA-Public Use
  Company Number: CA-US-EMD SERONO, INC.-7091285

PATIENT
  Sex: Male

DRUGS (10)
  1. VITAMIN D [Concomitant]
     Indication: PRODUCT USED FOR UNKNOWN INDICATION
  2. SLEEP-EEZE [Concomitant]
     Indication: PRODUCT USED FOR UNKNOWN INDICATION
     Dosage: 1-2 TABLETS
  3. REBIF [Suspect]
     Indication: RELAPSING-REMITTING MULTIPLE SCLEROSIS
     Route: 058
     Dates: start: 20091022, end: 20111003
  4. NEUPOGEN [Concomitant]
     Indication: PRODUCT USED FOR UNKNOWN INDICATION
     Dates: start: 20120409
  5. REBIF [Suspect]
     Indication: MULTIPLE SCLEROSIS
     Route: 058
     Dates: start: 20111003
  6. CHLORAZEPAM [Concomitant]
     Indication: PRODUCT USED FOR UNKNOWN INDICATION
     Dosage: 1-2 TABLETS AT BEDTIME
  7. REBIF [Suspect]
     Route: 058
     Dates: end: 20120409
  8. STEROIDS [Concomitant]
     Indication: PRODUCT USED FOR UNKNOWN INDICATION
     Route: 048
     Dates: start: 20120228
  9. 5 FU CHEMOTHERAPY [Concomitant]
     Indication: NEOPLASM MALIGNANT
     Route: 042
     Dates: start: 20110913, end: 20111017
  10. CHEMOTHERAPY [Concomitant]
     Indication: PRODUCT USED FOR UNKNOWN INDICATION
     Dates: start: 20120228

REACTIONS (10)
  - FALL [None]
  - SLEEP DISORDER [None]
  - MALIGNANT MELANOMA [None]
  - INFLUENZA LIKE ILLNESS [None]
  - FATIGUE [None]
  - PLATELET COUNT DECREASED [None]
  - WHITE BLOOD CELL COUNT DECREASED [None]
  - COLORECTAL CANCER [None]
  - OROPHARYNGEAL PAIN [None]
  - LIMB INJURY [None]
